FAERS Safety Report 12644239 (Version 1)
Quarter: 2016Q3

REPORT INFORMATION
  Report Type: Spontaneous
  Country: US (occurrence: US)
  Receive Date: 20160811
  Receipt Date: 20160811
  Transmission Date: 20161109
  Serious: Yes (Other)
  Sender: FDA-Public Use
  Company Number: US-PFIZER INC-2016375840

PATIENT
  Age: 36 Year
  Sex: Male

DRUGS (4)
  1. ETOPOSIDE. [Concomitant]
     Active Substance: ETOPOSIDE
     Indication: METASTASES TO TESTICLE
     Dosage: 100 MG/M2, DAILY (FOR DAYS 1-5) TOTAL OF 3 CYCLES (EVERY 3 WEEKS)
  2. CISPLATIN. [Concomitant]
     Active Substance: CISPLATIN
     Indication: METASTASES TO TESTICLE
     Dosage: 20 MG/M2, DAILY (DAYS 1-5) EVERY 3 WEEKS FOR A TOTAL OF 3 CYCLES
  3. BLEOMYCIN SULFATE [Suspect]
     Active Substance: BLEOMYCIN SULFATE
     Indication: METASTASES TO TESTICLE
     Dosage: UNK, EVERY 3 WEEKS (30 UNITS DAYS 1, 8, 15) TOTAL OF 3 CYCLES
  4. CISPLATIN. [Concomitant]
     Active Substance: CISPLATIN
     Dosage: UNK

REACTIONS (1)
  - Organising pneumonia [Recovered/Resolved]
